FAERS Safety Report 18388052 (Version 2)
Quarter: 2020Q4

REPORT INFORMATION
  Report Type: Spontaneous
  Country: GB (occurrence: GB)
  Receive Date: 20201015
  Receipt Date: 20201022
  Transmission Date: 20210114
  Serious: Yes (Other)
  Sender: FDA-Public Use
  Company Number: GB-PFIZER INC-2020395234

PATIENT
  Age: 32 Year
  Sex: Male

DRUGS (11)
  1. VINCRISTINE SULFATE. [Suspect]
     Active Substance: VINCRISTINE SULFATE
     Indication: T-CELL LYMPHOMA
     Dosage: UNK, CYCLIC (2 CYCLES OF (CHOP))
     Dates: start: 201102
  2. VINCRISTINE SULFATE. [Suspect]
     Active Substance: VINCRISTINE SULFATE
     Dosage: UNK, CYCLIC (4 CYCLES OF (CODOX-M IVAC))
     Dates: end: 201109
  3. METHOTREXATE SODIUM. [Suspect]
     Active Substance: METHOTREXATE SODIUM
     Indication: T-CELL LYMPHOMA
     Dosage: UNK, CYCLIC (4 CYCLES OF (CODOX-M IVAC))
     Dates: end: 201109
  4. DOXORUBICIN HCL [Suspect]
     Active Substance: DOXORUBICIN HYDROCHLORIDE
     Indication: T-CELL LYMPHOMA
     Dosage: UNK, CYCLIC (2 CYCLES OF (CHOP))
     Dates: start: 201102
  5. CYTARABINE. [Suspect]
     Active Substance: CYTARABINE
     Indication: T-CELL LYMPHOMA
     Dosage: UNK, CYCLIC (4 CYCLES OF (CODOX-M IVAC)
     Dates: end: 201109
  6. DOXORUBICIN HCL [Suspect]
     Active Substance: DOXORUBICIN HYDROCHLORIDE
     Dosage: UNK, CYCLIC (4 CYCLES OF (CODOX-M IVAC))
     Dates: end: 201109
  7. ETOPOSIDE. [Suspect]
     Active Substance: ETOPOSIDE
     Indication: T-CELL LYMPHOMA
     Dosage: UNK, CYCLIC (4 CYCLES OF (CODOX-M IVAC))
     Dates: start: 2011, end: 201109
  8. PREDNISOLONE. [Suspect]
     Active Substance: PREDNISOLONE
     Indication: T-CELL LYMPHOMA
     Dosage: UNK, CYCLIC (2 CYCLES OF (CHOP))
     Dates: start: 201102
  9. IFOSFAMIDE. [Suspect]
     Active Substance: IFOSFAMIDE
     Indication: T-CELL LYMPHOMA
     Dosage: UNK, CYCLIC (4 CYCLES OF (CODOX-M IVAC))
     Dates: start: 2011, end: 201109
  10. CYCLOPHOSPHAMIDE. [Suspect]
     Active Substance: CYCLOPHOSPHAMIDE
     Indication: T-CELL LYMPHOMA
     Dosage: UNK, CYCLIC (2 CYCLES OF (CHOP))
     Dates: start: 201102
  11. CYCLOPHOSPHAMIDE. [Suspect]
     Active Substance: CYCLOPHOSPHAMIDE
     Dosage: UNK, CYCLIC (4 CYCLES OF (CODOX-M IVAC))
     Dates: end: 201109

REACTIONS (6)
  - Bone infarction [Unknown]
  - Poor quality sleep [Unknown]
  - Depression [Unknown]
  - Osteonecrosis [Unknown]
  - Impaired work ability [Unknown]
  - Arthralgia [Unknown]

NARRATIVE: CASE EVENT DATE: 201203
